FAERS Safety Report 6267089-9 (Version None)
Quarter: 2009Q3

REPORT INFORMATION
  Report Type: 
  Country: None (occurrence: None)
  Receive Date: 20090714
  Receipt Date: 20090703
  Transmission Date: 20100115
  Serious: Yes (Hospitalization, Other)
  Sender: FDA-Public Use
  Company Number: FR-BRISTOL-MYERS SQUIBB COMPANY-14697940

PATIENT
  Age: 72 Year
  Sex: Male

DRUGS (15)
  1. FOZITEC [Suspect]
     Route: 048
     Dates: end: 20080415
  2. KALEORID [Suspect]
     Indication: HYPOKALAEMIA
     Dosage: START DATE: 9 OR 10APR08. STOPPED DATE:14 OR 15APR08
     Dates: start: 20080401, end: 20080401
  3. ALDACTONE [Suspect]
     Dosage: START DATE: EARLY APR08.
     Route: 048
     Dates: start: 20080401, end: 20080415
  4. ASPIRIN [Concomitant]
     Route: 048
  5. KREDEX [Concomitant]
  6. LASIX [Concomitant]
  7. ALLOPURINOL [Concomitant]
  8. SOLUPRED [Concomitant]
     Route: 048
  9. AUGMENTIN [Concomitant]
     Dates: start: 20080401, end: 20080420
  10. KARDEGIC [Concomitant]
     Route: 048
  11. ADANCOR [Concomitant]
     Route: 048
  12. SERETIDE [Concomitant]
  13. DEROXAT [Concomitant]
  14. XANAX [Concomitant]
  15. DOLIPRANE [Concomitant]

REACTIONS (8)
  - ACUTE PULMONARY OEDEMA [None]
  - ANGINA PECTORIS [None]
  - ARRHYTHMIA [None]
  - ATRIOVENTRICULAR BLOCK [None]
  - BRONCHOPNEUMONIA [None]
  - CARDIOGENIC SHOCK [None]
  - HYPERKALAEMIA [None]
  - RENAL FAILURE ACUTE [None]
